FAERS Safety Report 5332352-2 (Version None)
Quarter: 2007Q2

REPORT INFORMATION
  Report Type: 
  Country: None (occurrence: None)
  Receive Date: 20070523
  Receipt Date: 20070521
  Transmission Date: 20071010
  Serious: Yes (Hospitalization)
  Sender: FDA-Public Use
  Company Number: A0652170A

PATIENT
  Sex: Female

DRUGS (3)
  1. LAMICTAL [Suspect]
     Indication: BIPOLAR DISORDER
     Dosage: 50MG TWICE PER DAY
     Route: 048
     Dates: start: 20070329
  2. VERAPAMIL [Concomitant]
  3. SEROQUEL [Concomitant]

REACTIONS (11)
  - ANXIETY [None]
  - CONSTIPATION [None]
  - DYSPNOEA [None]
  - HEADACHE [None]
  - IRRITABILITY [None]
  - LYMPHADENOPATHY [None]
  - PAIN IN EXTREMITY [None]
  - PANIC ATTACK [None]
  - PARAESTHESIA [None]
  - RHINORRHOEA [None]
  - SUICIDE ATTEMPT [None]
